FAERS Safety Report 23049860 (Version 1)
Quarter: 2023Q4

REPORT INFORMATION
  Report Type: Spontaneous
  Country: US (occurrence: None)
  Receive Date: 20231009
  Receipt Date: 20231009
  Transmission Date: 20240110
  Serious: Yes (Death)
  Sender: FDA-Public Use
  Company Number: None

PATIENT
  Sex: Female

DRUGS (1)
  1. BOTOX [Suspect]
     Active Substance: ONABOTULINUMTOXINA
     Indication: Saliva altered
     Dosage: INJECT INTO SALIVARY GLAND ONCE AS NEEDED EVERY 3 MONTHS FOR SIALORRHEA?
     Dates: start: 20230831

REACTIONS (1)
  - Death [None]
